FAERS Safety Report 8094108-X (Version None)
Quarter: 2012Q1

REPORT INFORMATION
  Report Type: 
  Country: None (occurrence: None)
  Receive Date: 20120131
  Receipt Date: 20120120
  Transmission Date: 20120608
  Serious: Yes (Hospitalization)
  Sender: FDA-Public Use
  Company Number: IT-TEVA-319682ISR

PATIENT
  Sex: Male

DRUGS (2)
  1. PROPAFENONE HCL [Suspect]
  2. LORAZEPAM [Suspect]

REACTIONS (1)
  - BRADYPHRENIA [None]
